FAERS Safety Report 16118531 (Version 2)
Quarter: 2020Q2

REPORT INFORMATION
  Report Type: Spontaneous
  Country: CN (occurrence: CN)
  Receive Date: 20190326
  Receipt Date: 20200410
  Transmission Date: 20200713
  Serious: Yes (Other)
  Sender: FDA-Public Use
  Company Number: CN-VALIDUS PHARMACEUTICALS LLC-CN-2019VAL000170

PATIENT

DRUGS (3)
  1. SEVELAMER [Concomitant]
     Active Substance: SEVELAMER
     Indication: END STAGE RENAL DISEASE
     Dosage: UNK
     Dates: start: 201209
  2. ROCALTROL [Suspect]
     Active Substance: CALCITRIOL
     Indication: END STAGE RENAL DISEASE
     Dosage: 0.25 ?G, QD
     Route: 048
     Dates: start: 201111
  3. ROCALTROL [Suspect]
     Active Substance: CALCITRIOL
     Dosage: 1.25 ?G, 1 IN 4 D
     Route: 048
     Dates: start: 201608

REACTIONS (2)
  - Hyperparathyroidism secondary [Unknown]
  - Gastrointestinal haemorrhage [Unknown]

NARRATIVE: CASE EVENT DATE: 2012
